FAERS Safety Report 7290369-5 (Version None)
Quarter: 2011Q1

REPORT INFORMATION
  Report Type: 
  Country: None (occurrence: None)
  Receive Date: 20110214
  Receipt Date: 20110203
  Transmission Date: 20110831
  Serious: Yes (Hospitalization)
  Sender: FDA-Public Use
  Company Number: ES-SANOFI-AVENTIS-2011SA007360

PATIENT
  Age: 74 Year
  Sex: Female

DRUGS (6)
  1. CITALOPRAM HYDROBROMIDE [Suspect]
     Indication: DEPRESSION
     Route: 048
     Dates: start: 20100801
  2. EMPORTAL [Concomitant]
     Route: 065
  3. TERTENSIF - SLOW RELEASE [Suspect]
     Indication: HYPERTENSION
     Route: 048
     Dates: start: 19990101, end: 20100810
  4. LORMETAZEPAM [Concomitant]
     Route: 065
     Dates: start: 20100801
  5. OMEPRAZOLE [Concomitant]
     Route: 065
  6. LEVOTHROID [Concomitant]
     Route: 065
     Dates: start: 19700101

REACTIONS (1)
  - INAPPROPRIATE ANTIDIURETIC HORMONE SECRETION [None]
